FAERS Safety Report 4686494-5 (Version None)
Quarter: 2005Q2

REPORT INFORMATION
  Report Type: 
  Country: None (occurrence: None)
  Receive Date: 20050609
  Receipt Date: 20050531
  Transmission Date: 20051028
  Serious: Yes (Other)
  Sender: FDA-Public Use
  Company Number: PHBS2005BR07900

PATIENT
  Age: 73 Year
  Sex: Female

DRUGS (4)
  1. GLEEVEC [Suspect]
     Indication: CHRONIC MYELOID LEUKAEMIA
     Dosage: 600 MG/D
     Route: 048
  2. GLEEVEC [Suspect]
     Dosage: 400 MG/D
     Route: 048
  3. GLEEVEC [Suspect]
     Dosage: 800 MG/D
     Route: 048
     Dates: end: 20050531
  4. GLEEVEC [Suspect]
     Dosage: 600 MG/D
     Route: 048
     Dates: start: 20050601

REACTIONS (8)
  - BLOOD ALKALINE PHOSPHATASE INCREASED [None]
  - DIARRHOEA [None]
  - HAEMATOCRIT DECREASED [None]
  - HAEMOGLOBIN DECREASED [None]
  - LEUKOCYTOSIS [None]
  - MALIGNANT NEOPLASM PROGRESSION [None]
  - PLATELET COUNT INCREASED [None]
  - VOMITING [None]
